FAERS Safety Report 14639814 (Version 1)
Quarter: 2018Q1

REPORT INFORMATION
  Report Type: Spontaneous
  Country: US (occurrence: US)
  Receive Date: 20180315
  Receipt Date: 20180315
  Transmission Date: 20180509
  Serious: No
  Sender: FDA-Public Use
  Company Number: US-BAYER-2018-049855

PATIENT
  Age: 85 Year
  Sex: Female
  Weight: 61.68 kg

DRUGS (7)
  1. MIRALAX [Suspect]
     Active Substance: POLYETHYLENE GLYCOL 3350
     Indication: GASTROINTESTINAL DISORDER
     Dosage: 1 DF, QD
     Route: 048
     Dates: start: 2015
  2. PRAVACHOL [Concomitant]
     Active Substance: PRAVASTATIN SODIUM
  3. FOLIC ACID. [Concomitant]
     Active Substance: FOLIC ACID
  4. BETAPACE [Concomitant]
     Active Substance: SOTALOL HYDROCHLORIDE
  5. BAYER LOW DOSE [Concomitant]
     Active Substance: ASPIRIN
     Indication: PROPHYLAXIS
     Dosage: 1 DF, QD
     Route: 048
     Dates: start: 1990
  6. LOSARTAN. [Concomitant]
     Active Substance: LOSARTAN
  7. HYDROCHLOROTHIAZIDE. [Concomitant]
     Active Substance: HYDROCHLOROTHIAZIDE

REACTIONS (4)
  - Circumstance or information capable of leading to medication error [Unknown]
  - Product taste abnormal [Unknown]
  - Incorrect drug administration duration [Unknown]
  - Product odour abnormal [Unknown]

NARRATIVE: CASE EVENT DATE: 2015
